FAERS Safety Report 18384819 (Version 1)
Quarter: 2020Q4

REPORT INFORMATION
  Report Type: Spontaneous
  Country: PT (occurrence: PT)
  Receive Date: 20201015
  Receipt Date: 20201015
  Transmission Date: 20210114
  Serious: Yes (Other)
  Sender: FDA-Public Use
  Company Number: PT-AMGEN-PRTSP2020162191

PATIENT

DRUGS (1)
  1. TRASTUZUMAB. [Suspect]
     Active Substance: TRASTUZUMAB
     Indication: PRODUCT USED FOR UNKNOWN INDICATION
     Dosage: UNK
     Route: 065

REACTIONS (6)
  - Hypertension [Unknown]
  - Tachycardia [Unknown]
  - Anaphylactic shock [Unknown]
  - Cutaneous symptom [Unknown]
  - Pyrexia [Unknown]
  - Chest pain [Unknown]
